FAERS Safety Report 5840701-1 (Version None)
Quarter: 2008Q3

REPORT INFORMATION
  Report Type: 
  Country: None (occurrence: None)
  Receive Date: 20080731
  Receipt Date: 20080527
  Transmission Date: 20090109
  Serious: No
  Sender: FDA-Public Use
  Company Number: US200805002383

PATIENT
  Age: 62 Year
  Sex: Male

DRUGS (7)
  1. BYETTA [Suspect]
     Indication: TYPE 2 DIABETES MELLITUS
     Dosage: 5 UG, 2/D, SUBCUTANEOUS; 10 UG 2/D SUBCUTANEOUS
     Route: 058
     Dates: start: 20070101, end: 20070101
  2. BYETTA [Suspect]
     Indication: TYPE 2 DIABETES MELLITUS
     Dosage: 5 UG, 2/D, SUBCUTANEOUS; 10 UG 2/D SUBCUTANEOUS
     Route: 058
     Dates: start: 20070101
  3. EXENATIDE 5 MCG PEN, DISPOSABLE DEVICE (EXENATIDE PEN (5 MCG)) PEN, DI [Concomitant]
  4. LANTUS [Concomitant]
  5. PRANDIN /USA/ (REPAGLINIDE) [Concomitant]
  6. GLUCOPHAGE [Concomitant]
  7. AVANDIA [Concomitant]

REACTIONS (8)
  - BLOOD GLUCOSE DECREASED [None]
  - BLOOD GLUCOSE INCREASED [None]
  - FEELING COLD [None]
  - NAUSEA [None]
  - POOR QUALITY SLEEP [None]
  - TREMOR [None]
  - WEIGHT DECREASED [None]
  - WEIGHT INCREASED [None]
